FAERS Safety Report 5984058-4 (Version None)
Quarter: 2008Q4

REPORT INFORMATION
  Report Type: 
  Country: None (occurrence: None)
  Receive Date: 20081208
  Receipt Date: 20081201
  Transmission Date: 20090506
  Serious: Yes (Disabling)
  Sender: FDA-Public Use
  Company Number: JP-ASTRAZENECA-2007AP01040

PATIENT
  Age: 19 Year
  Sex: Female

DRUGS (1)
  1. MARCAINE [Suspect]
     Indication: EPIDURAL ANAESTHESIA
     Dosage: ADMINISTERED INTERMITTENTLY SEVERAL TIMES
     Route: 008
     Dates: start: 20050601, end: 20050601

REACTIONS (1)
  - LUMBOSACRAL PLEXUS INJURY [None]
